FAERS Safety Report 14747075 (Version 1)
Quarter: 2018Q2

REPORT INFORMATION
  Report Type: Report from Study
  Country: FR (occurrence: FR)
  Receive Date: 20180411
  Receipt Date: 20180411
  Transmission Date: 20180711
  Serious: Yes (Death)
  Sender: FDA-Public Use
  Company Number: FR-PFIZER INC-2018146676

PATIENT

DRUGS (5)
  1. CYCLOPHOSPHAMIDE. [Suspect]
     Active Substance: CYCLOPHOSPHAMIDE
     Indication: NON-HODGKIN^S LYMPHOMA
     Dosage: UNK, 1 G/M2/DAY AT LEVEL 1 ON DAYS 1 AND 2
  2. DOXORUBICIN HCL [Suspect]
     Active Substance: DOXORUBICIN HYDROCHLORIDE
     Indication: NON-HODGKIN^S LYMPHOMA
     Dosage: 75 MG/M2, UNK, ON DAY 1 AT ALL LEVELS
  3. ETOPOSIDE. [Suspect]
     Active Substance: ETOPOSIDE
     Dosage: 180 MG/M2, DAILY, ON DAYS 1, 2 AND 3 AT LEVEL 3
  4. CYCLOPHOSPHAMIDE. [Suspect]
     Active Substance: CYCLOPHOSPHAMIDE
     Dosage: UNK, 1.2 G/M2/DAY AT LEVELS 2 AND 3 ON DAYS 1 AND 2
  5. ETOPOSIDE. [Suspect]
     Active Substance: ETOPOSIDE
     Indication: NON-HODGKIN^S LYMPHOMA
     Dosage: 150 MG/M2, DAILY, ON DAYS 1, 2 AND 3 AT LEVELS 1 AND 2

REACTIONS (1)
  - Tumour lysis syndrome [Fatal]
